FAERS Safety Report 4902339-X (Version None)
Quarter: 2006Q1

REPORT INFORMATION
  Report Type: 
  Country: None (occurrence: None)
  Receive Date: 20060202
  Receipt Date: 20060123
  Transmission Date: 20060701
  Serious: Yes (Hospitalization)
  Sender: FDA-Public Use
  Company Number: 2006-01-1368

PATIENT
  Age: 47 Year
  Sex: Female

DRUGS (3)
  1. CLARITIN [Suspect]
     Dosage: 5 MG QD ORAL
     Route: 048
  2. LEVOTHYROX [Concomitant]
  3. CALCIUM CARBONATE [Concomitant]

REACTIONS (4)
  - HYPOCALCAEMIA [None]
  - HYPOTHYROIDISM [None]
  - PARAESTHESIA [None]
  - POST PROCEDURAL COMPLICATION [None]
